FAERS Safety Report 16998184 (Version 2)
Quarter: 2019Q4

REPORT INFORMATION
  Report Type: Spontaneous
  Country: US (occurrence: US)
  Receive Date: 20191106
  Receipt Date: 20191216
  Transmission Date: 20200122
  Serious: Yes (Hospitalization, Other)
  Sender: FDA-Public Use
  Company Number: US-DRREDDYS-USA/USA/19/0115709

PATIENT
  Age: 59 Year
  Sex: Male

DRUGS (3)
  1. LIDOCAINE. [Concomitant]
     Active Substance: LIDOCAINE
     Indication: INDUCTION OF ANAESTHESIA
     Route: 065
  2. PROPOFOL INJECTABLE EMULSION [Suspect]
     Active Substance: PROPOFOL
     Indication: INDUCTION OF ANAESTHESIA
     Route: 065
  3. BUPIVACAINE HYDROCHLORIDE, EPINEPHRINE [Concomitant]
     Indication: NERVE BLOCK

REACTIONS (4)
  - Dystonia [Recovered/Resolved]
  - Hypertension [Recovered/Resolved]
  - Autonomic nervous system imbalance [Recovered/Resolved]
  - Tachycardia [Recovered/Resolved]
